FAERS Safety Report 4907925-9 (Version None)
Quarter: 2006Q1

REPORT INFORMATION
  Report Type: 
  Country: None (occurrence: None)
  Receive Date: 20060208
  Receipt Date: 20060131
  Transmission Date: 20060701
  Serious: No
  Sender: FDA-Public Use
  Company Number: FABR-11341

PATIENT
  Age: 49 Year
  Sex: Male
  Weight: 54 kg

DRUGS (4)
  1. FABRAZYME [Suspect]
     Indication: FABRY'S DISEASE
     Dosage: 55 MG Q2WKS IV
     Dates: start: 20041218
  2. PREDNISOLONE [Concomitant]
  3. HYDROXYZINE PAMOATE [Concomitant]
  4. IBUPROFEN [Concomitant]

REACTIONS (6)
  - COUGH [None]
  - DYSPNOEA [None]
  - HYPERSENSITIVITY [None]
  - RALES [None]
  - URTICARIA GENERALISED [None]
  - WHEEZING [None]
